FAERS Safety Report 9479446 (Version 2)
Quarter: 2013Q4

REPORT INFORMATION
  Report Type: Spontaneous
  Country: US (occurrence: US)
  Receive Date: 20130827
  Receipt Date: 20131008
  Transmission Date: 20140711
  Serious: No
  Sender: FDA-Public Use
  Company Number: US-PFIZER INC-2013246125

PATIENT
  Sex: Female

DRUGS (2)
  1. LYRICA [Suspect]
     Indication: DIABETIC NEUROPATHY
     Dosage: UNK
  2. GEMFIBROZIL [Suspect]
     Dosage: 600 MG, 1X/DAY (IN THE EVENING)

REACTIONS (4)
  - Myalgia [Recovering/Resolving]
  - Muscular weakness [Unknown]
  - Dry mouth [Unknown]
  - Vision blurred [Unknown]
